FAERS Safety Report 7432048-7 (Version None)
Quarter: 2011Q2

REPORT INFORMATION
  Report Type: 
  Country: None (occurrence: None)
  Receive Date: 20110422
  Receipt Date: 20110418
  Transmission Date: 20111010
  Serious: Yes (Hospitalization)
  Sender: FDA-Public Use
  Company Number: US-BRISTOL-MYERS SQUIBB COMPANY-15680903

PATIENT
  Age: 85 Year
  Sex: Male
  Weight: 91 kg

DRUGS (5)
  1. ABILIFY [Concomitant]
  2. SEROQUEL [Concomitant]
  3. MULTIPLE VITAMINS [Concomitant]
  4. HYDROXYUREA [Suspect]
     Indication: PLATELET COUNT DECREASED
  5. FELODIPINE [Concomitant]
     Dosage: FELODIPINE ER 2.5MG

REACTIONS (4)
  - PNEUMONIA [None]
  - TREMOR [None]
  - INFLUENZA [None]
  - BODY TEMPERATURE INCREASED [None]
